FAERS Safety Report 24578818 (Version 2)
Quarter: 2024Q4

REPORT INFORMATION
  Report Type: Spontaneous
  Country: US (occurrence: US)
  Receive Date: 20241105
  Receipt Date: 20241129
  Transmission Date: 20250114
  Serious: Yes (Other)
  Sender: DOMPE FARMACEUTICI
  Company Number: US-FARMAPROD-202410-3672

PATIENT
  Age: 61 Year
  Sex: Female

DRUGS (6)
  1. OXERVATE [Suspect]
     Active Substance: CENEGERMIN-BKBJ
     Indication: Neurotrophic keratopathy
     Route: 047
     Dates: start: 20240911, end: 20241016
  2. VALTREX [Concomitant]
     Active Substance: VALACYCLOVIR HYDROCHLORIDE
     Indication: Herpes virus infection
     Route: 048
  3. E-MYCIN [Concomitant]
     Active Substance: ERYTHROMYCIN
     Indication: Ulcer
     Route: 061
  4. DOXYCYCLINE [Concomitant]
     Active Substance: DOXYCYCLINE
     Indication: Inflammation
     Route: 048
  5. PREDNISOLONE [Concomitant]
     Active Substance: PREDNISOLONE
     Indication: Viral infection
     Route: 047
     Dates: end: 20241010
  6. SERTRALIN ESPARMA [Concomitant]
     Route: 048

REACTIONS (1)
  - Eye infection fungal [Not Recovered/Not Resolved]

NARRATIVE: CASE EVENT DATE: 20241016
